FAERS Safety Report 15590106 (Version 3)
Quarter: 2019Q1

REPORT INFORMATION
  Report Type: Report from Study
  Country: US (occurrence: US)
  Receive Date: 20181106
  Receipt Date: 20190329
  Transmission Date: 20190417
  Serious: Yes (Other)
  Sender: FDA-Public Use
  Company Number: PHEH2018US046004

PATIENT
  Sex: Male
  Weight: 32 kg

DRUGS (1)
  1. KYMRIAH [Suspect]
     Active Substance: TISAGENLECLEUCEL
     Indication: B-CELL TYPE ACUTE LEUKAEMIA
     Dosage: 31 ML, ONCE/SINGLE
     Route: 041
     Dates: start: 20180917

REACTIONS (7)
  - Cytokine release syndrome [Recovered/Resolved]
  - Hypoxia [Unknown]
  - Pyrexia [Unknown]
  - Klebsiella infection [Unknown]
  - Drug ineffective [Not Recovered/Not Resolved]
  - Neutrophil count decreased [Recovered/Resolved]
  - Hypogammaglobulinaemia [Unknown]
